FAERS Safety Report 9667681 (Version 1)
Quarter: 2013Q4

REPORT INFORMATION
  Report Type: Spontaneous
  Country: US (occurrence: US)
  Receive Date: 20131101
  Receipt Date: 20131101
  Transmission Date: 20140711
  Serious: No
  Sender: FDA-Public Use
  Company Number: US-ORACLE-2012S1000023

PATIENT
  Age: 60 Year
  Sex: Female

DRUGS (18)
  1. KRYSTEXXA INJECTION [Suspect]
     Indication: GOUT
     Route: 042
     Dates: start: 20120301, end: 20120315
  2. ASPIRIN [Concomitant]
     Indication: PRODUCT USED FOR UNKNOWN INDICATION
  3. PERCOCET /00867901/ [Concomitant]
     Indication: PRODUCT USED FOR UNKNOWN INDICATION
  4. DIGOXIN [Concomitant]
     Indication: PRODUCT USED FOR UNKNOWN INDICATION
  5. HYDROXYZINE [Concomitant]
     Indication: PRODUCT USED FOR UNKNOWN INDICATION
  6. CYMBALTA [Concomitant]
     Indication: PRODUCT USED FOR UNKNOWN INDICATION
  7. ANTARA [Concomitant]
     Indication: PRODUCT USED FOR UNKNOWN INDICATION
  8. TORSEMIDE [Concomitant]
     Indication: PRODUCT USED FOR UNKNOWN INDICATION
  9. NEURONTIN [Concomitant]
     Indication: PRODUCT USED FOR UNKNOWN INDICATION
  10. LISINOPRIL [Concomitant]
     Indication: PRODUCT USED FOR UNKNOWN INDICATION
  11. POTASSIUM [Concomitant]
     Indication: PRODUCT USED FOR UNKNOWN INDICATION
  12. COLCHICINE [Concomitant]
     Indication: PRODUCT USED FOR UNKNOWN INDICATION
  13. APIDRA [Concomitant]
     Indication: PRODUCT USED FOR UNKNOWN INDICATION
  14. LANTUS [Concomitant]
     Indication: PRODUCT USED FOR UNKNOWN INDICATION
  15. ENBREL [Concomitant]
     Indication: PRODUCT USED FOR UNKNOWN INDICATION
  16. ULORIC [Concomitant]
     Indication: PRODUCT USED FOR UNKNOWN INDICATION
  17. SOLUMEDROL [Concomitant]
     Indication: PREMEDICATION
     Dates: start: 20120301, end: 20120315
  18. BENADRYL /00945501/ [Concomitant]
     Indication: PREMEDICATION
     Dates: start: 20120301, end: 20120315

REACTIONS (1)
  - Gout [Not Recovered/Not Resolved]
